FAERS Safety Report 17974739 (Version 1)
Quarter: 2020Q3

REPORT INFORMATION
  Report Type: Spontaneous
  Country: US (occurrence: US)
  Receive Date: 20200702
  Receipt Date: 20200702
  Transmission Date: 20201103
  Serious: No
  Sender: FDA-Public Use
  Company Number: US-AMNEAL PHARMACEUTICALS-2019-AMRX-02067

PATIENT
  Sex: Male

DRUGS (6)
  1. CARBIDOPA?LEVODOPA ER [Suspect]
     Active Substance: CARBIDOPA\LEVODOPA
     Indication: PRODUCT USED FOR UNKNOWN INDICATION
     Dosage: UNK (ALMOST 10 YEARS)
     Route: 065
  2. RYTARY [Suspect]
     Active Substance: CARBIDOPA\LEVODOPA
     Dosage: 36.25/145MG
     Route: 048
     Dates: start: 20190928
  3. RYTARY [Suspect]
     Active Substance: CARBIDOPA\LEVODOPA
     Dosage: 36.25/145MG, 3 CAPSULES, 3X/DAY
     Route: 048
     Dates: start: 20200406
  4. RYTARY [Suspect]
     Active Substance: CARBIDOPA\LEVODOPA
     Dosage: 36.25/145MG, 3 CAPSULES, 3X/DAY
     Route: 048
     Dates: start: 20200406
  5. RYTARY [Suspect]
     Active Substance: CARBIDOPA\LEVODOPA
     Dosage: 48.75/195MG, 3 CAPSULES, 3X/DAY
     Route: 048
  6. RYTARY [Suspect]
     Active Substance: CARBIDOPA\LEVODOPA
     Indication: PARKINSON^S DISEASE
     Dosage: 23.75?95MG, 4 CAPSULES, 3 /DAY
     Route: 048

REACTIONS (4)
  - Feeling abnormal [Recovered/Resolved]
  - Illness [Recovered/Resolved]
  - Speech disorder [Recovered/Resolved]
  - Freezing phenomenon [Recovered/Resolved]

NARRATIVE: CASE EVENT DATE: 2019
